FAERS Safety Report 6242166-7 (Version None)
Quarter: 2009Q2

REPORT INFORMATION
  Report Type: 
  Country: None (occurrence: None)
  Receive Date: 20090624
  Receipt Date: 20090611
  Transmission Date: 20091009
  Serious: Yes (Other)
  Sender: FDA-Public Use
  Company Number: GB-RANBAXY-2009RR-24936

PATIENT
  Sex: Female

DRUGS (1)
  1. FLUCONAZOLE [Suspect]
     Dosage: 150 MG, UNK
     Dates: start: 20090514

REACTIONS (3)
  - LOCAL SWELLING [None]
  - THROAT IRRITATION [None]
  - URTICARIA [None]
